FAERS Safety Report 6065028-7 (Version None)
Quarter: 2009Q1

REPORT INFORMATION
  Report Type: 
  Country: None (occurrence: None)
  Receive Date: 20090204
  Receipt Date: 20090126
  Transmission Date: 20090719
  Serious: Yes (Hospitalization, Other)
  Sender: FDA-Public Use
  Company Number: CA-ROCHE-610172

PATIENT
  Age: 37 Year
  Sex: Male

DRUGS (6)
  1. NAPROXEN [Suspect]
     Indication: DRUG USE FOR UNKNOWN INDICATION
     Dosage: ROUTE: INGESTION
     Route: 048
  2. NAPROXEN [Suspect]
     Route: 048
  3. LORAZEPAM [Suspect]
     Indication: DRUG USE FOR UNKNOWN INDICATION
     Dosage: ROUTE: INGESTION
     Route: 048
  4. OXAZEPAM [Suspect]
     Indication: DRUG USE FOR UNKNOWN INDICATION
     Dosage: ROUTE: INGESTION
     Route: 048
  5. BACLOFEN [Suspect]
     Indication: DRUG USE FOR UNKNOWN INDICATION
     Dosage: ROUTE: INGESTION
     Route: 048
  6. ETHANOL [Suspect]
     Indication: DRUG USE FOR UNKNOWN INDICATION
     Dosage: ROUTE: INGESTION
     Route: 048

REACTIONS (2)
  - HYPERBILIRUBINAEMIA [None]
  - SUICIDE ATTEMPT [None]
